FAERS Safety Report 10468707 (Version 2)
Quarter: 2014Q3

REPORT INFORMATION
  Report Type: Report from Study
  Country: US (occurrence: US)
  Receive Date: 20140922
  Receipt Date: 20140922
  Transmission Date: 20150326
  Serious: Yes (Other)
  Sender: FDA-Public Use
  Company Number: US-ALEXION-A201002272

PATIENT
  Sex: Female

DRUGS (1)
  1. SOLIRIS [Suspect]
     Active Substance: ECULIZUMAB
     Indication: PAROXYSMAL NOCTURNAL HAEMOGLOBINURIA
     Dosage: UNK
     Route: 042

REACTIONS (15)
  - Blood lactate dehydrogenase increased [Unknown]
  - Splenomegaly [Unknown]
  - Fatigue [Unknown]
  - Headache [Unknown]
  - Quality of life decreased [Unknown]
  - Nasopharyngitis [Unknown]
  - Liver injury [Unknown]
  - Migraine [Unknown]
  - Transfusion [Unknown]
  - Haemoglobin decreased [Unknown]
  - Dysphagia [Unknown]
  - Biopsy bone marrow [Unknown]
  - Bone marrow disorder [Unknown]
  - Stress [Unknown]
  - Platelet count decreased [None]
